FAERS Safety Report 24808374 (Version 1)
Quarter: 2025Q1

REPORT INFORMATION
  Report Type: Spontaneous
  Country: US (occurrence: US)
  Receive Date: 20250106
  Receipt Date: 20250106
  Transmission Date: 20250409
  Serious: Yes (Hospitalization, Other)
  Sender: UCB
  Company Number: US-UCBSA-2024068679

PATIENT
  Age: 6 Year
  Sex: Female

DRUGS (21)
  1. LEVETIRACETAM [Suspect]
     Active Substance: LEVETIRACETAM
     Indication: Partial seizures
  2. LEVETIRACETAM [Suspect]
     Active Substance: LEVETIRACETAM
  3. LEVETIRACETAM [Suspect]
     Active Substance: LEVETIRACETAM
  4. LACOSAMIDE [Suspect]
     Active Substance: LACOSAMIDE
     Indication: Partial seizures
  5. LACOSAMIDE [Suspect]
     Active Substance: LACOSAMIDE
     Dosage: 11 MILLIGRAM/KILOGRAM, ONCE DAILY (QD)
  6. MIDAZOLAM [Suspect]
     Active Substance: MIDAZOLAM
     Indication: Partial seizures
  7. MIDAZOLAM [Suspect]
     Active Substance: MIDAZOLAM
     Indication: Off label use
  8. CLONAZEPAM [Suspect]
     Active Substance: CLONAZEPAM
     Indication: Partial seizures
  9. CLONAZEPAM [Suspect]
     Active Substance: CLONAZEPAM
  10. LORAZEPAM [Suspect]
     Active Substance: LORAZEPAM
     Indication: Partial seizures
  11. LORAZEPAM [Suspect]
     Active Substance: LORAZEPAM
  12. FOSPHENYTOIN [Suspect]
     Active Substance: FOSPHENYTOIN
     Indication: Partial seizures
  13. TOPIRAMATE [Suspect]
     Active Substance: TOPIRAMATE
     Indication: Partial seizures
  14. KETAMINE [Suspect]
     Active Substance: KETAMINE
     Indication: Partial seizures
  15. PHENOBARBITAL [Suspect]
     Active Substance: PHENOBARBITAL
     Indication: Partial seizures
  16. PHENOBARBITAL [Suspect]
     Active Substance: PHENOBARBITAL
  17. DEXAMETHASONE [Concomitant]
     Active Substance: DEXAMETHASONE
     Indication: Multisystem inflammatory syndrome
  18. ANAKINRA [Concomitant]
     Active Substance: ANAKINRA
     Indication: Multisystem inflammatory syndrome
  19. VALPROIC ACID [Concomitant]
     Active Substance: VALPROIC ACID
     Indication: Partial seizures
  20. DIAZEPAM [Concomitant]
     Active Substance: DIAZEPAM
     Indication: Partial seizures
  21. SOLU-MEDROL [Concomitant]
     Active Substance: METHYLPREDNISOLONE SODIUM SUCCINATE
     Indication: Partial seizures

REACTIONS (4)
  - Seizure [Recovered/Resolved]
  - Multiple-drug resistance [Unknown]
  - Off label use [Unknown]
  - Drug ineffective for unapproved indication [Unknown]
